FAERS Safety Report 18843867 (Version 1)
Quarter: 2021Q1

REPORT INFORMATION
  Report Type: Other
  Country: GB (occurrence: GB)
  Receive Date: 20210203
  Receipt Date: 20210203
  Transmission Date: 20210419
  Serious: Yes (Other)
  Sender: FDA-Public Use
  Company Number: GB-CELLTRION INC.-2021GB001024

PATIENT

DRUGS (44)
  1. PERTUZUMAB. [Suspect]
     Active Substance: PERTUZUMAB
     Dosage: 840 MG, EVERY 3 WEEKS
     Route: 042
     Dates: start: 20160606, end: 20180524
  2. FILGRASTIM [Concomitant]
     Active Substance: FILGRASTIM
     Indication: NEUTROPENIA
     Dosage: 300 MICROGRAM
     Route: 058
  3. NAPROXEN. [Concomitant]
     Active Substance: NAPROXEN
     Dosage: 250 MG, 0.25 DAY
     Route: 048
  4. PARACETAMOL [Concomitant]
     Active Substance: ACETAMINOPHEN
     Dosage: 1 G, 0.25 DAY
     Route: 048
  5. FORTISIP [Concomitant]
     Active Substance: CARBOHYDRATES\FATTY ACIDS\MINERALS\PROTEIN\VITAMINS
     Indication: WEIGHT DECREASED
     Dosage: UNK, AS NEEDED
     Route: 048
     Dates: start: 20190123
  6. CODEINE [Concomitant]
     Active Substance: CODEINE
     Dosage: 30 MG, EVERY 0.25 DAY
     Route: 048
     Dates: start: 20191009
  7. CARVEDILOL. [Concomitant]
     Active Substance: CARVEDILOL
     Indication: EJECTION FRACTION DECREASED
     Dosage: 37.5 MG, QD
     Route: 048
     Dates: start: 20180621, end: 20180724
  8. CETIRIZINE [Concomitant]
     Active Substance: CETIRIZINE HYDROCHLORIDE
     Dosage: UNK
     Route: 048
  9. TRAMADOL. [Concomitant]
     Active Substance: TRAMADOL
     Dosage: 50 MG, 0.25 DAY
     Route: 048
     Dates: start: 20160429
  10. AMETOP [TETRACAINE] [Concomitant]
     Active Substance: TETRACAINE
     Dosage: 4 %
     Route: 061
     Dates: start: 20160831
  11. DOCETAXEL. [Suspect]
     Active Substance: DOCETAXEL
     Dosage: 100 MG, EVERY 3 WEEKS
     Route: 042
     Dates: start: 20160629, end: 20160720
  12. LANSOPRAZOLE. [Concomitant]
     Active Substance: LANSOPRAZOLE
     Indication: DYSPHAGIA
     Dosage: 30 MG, QD
     Route: 048
     Dates: start: 20180619
  13. DEXAMETHASONE. [Concomitant]
     Active Substance: DEXAMETHASONE
     Dosage: 8 MG, 0.5 DAY
     Route: 048
  14. SALBUTAMOL [Concomitant]
     Active Substance: ALBUTEROL
     Dosage: EVERY 12 HOURS
  15. CANDESARTAN. [Concomitant]
     Active Substance: CANDESARTAN
     Dosage: 8 MG, QD
     Route: 048
     Dates: start: 20180724
  16. CARVEDILOL. [Concomitant]
     Active Substance: CARVEDILOL
     Dosage: 6.25 MG, 0.5 DAY
     Route: 048
     Dates: start: 20180724, end: 20181030
  17. LOPERAMIDE [Concomitant]
     Active Substance: LOPERAMIDE
     Dosage: 2 MG, PRN
     Route: 048
     Dates: start: 20160516
  18. HYOSCINE N?BUTYLBROMIDE [Concomitant]
     Active Substance: BUTYLSCOPOLAMINE
     Indication: SALIVARY HYPERSECRETION
     Dosage: 20 MG, 0.33 DAY
     Route: 048
     Dates: start: 20180619
  19. TRASTUZUMAB (UNKNOWN) [Suspect]
     Active Substance: TRASTUZUMAB
     Indication: HER2 POSITIVE BREAST CANCER
     Dosage: 450 MG, 1 DAY (DOSE REDUCED)
     Route: 042
     Dates: start: 20160516, end: 20160516
  20. TRASTUZUMAB (UNKNOWN) [Suspect]
     Active Substance: TRASTUZUMAB
     Dosage: 400 MG, EVERY 3 WEEKS (DOSE REDUCED)
     Route: 042
     Dates: start: 20160606, end: 20160606
  21. DOCETAXEL. [Suspect]
     Active Substance: DOCETAXEL
     Indication: HER2 POSITIVE BREAST CANCER
     Dosage: 124 MG, EVERY 3 WEEKS
     Route: 042
     Dates: start: 20160517, end: 20160609
  22. DOCETAXEL. [Suspect]
     Active Substance: DOCETAXEL
     Dosage: 85 MG, EVERY 3 WEEKS
     Route: 042
     Dates: start: 20160811, end: 20160831
  23. IRON ISOMALTOSIDE 1000 [Concomitant]
     Active Substance: IRON ISOMALTOSIDE 1000
     Indication: BLOOD IRON DECREASED
     Dosage: 100 MG, QD
     Route: 030
     Dates: start: 20180626, end: 20180627
  24. FORTISIP [Concomitant]
     Active Substance: CARBOHYDRATES\FATTY ACIDS\MINERALS\PROTEIN\VITAMINS
     Dosage: UNK, QD
     Route: 048
     Dates: start: 20160525
  25. OMEPRAZOLE. [Concomitant]
     Active Substance: OMEPRAZOLE
     Dosage: 20 MG, 0.5 DAY
     Route: 048
  26. MENTHOL;PARAFFIN, LIQUID;PETROLATUM [Concomitant]
     Dosage: 2 %, 0.33 DAY
     Route: 061
     Dates: start: 20160525
  27. NERATINIB [Suspect]
     Active Substance: NERATINIB
     Indication: HER2 POSITIVE BREAST CANCER
     Dosage: 240 MG, QD
     Route: 048
     Dates: start: 20191016
  28. ZOLEDRONIC ACID. [Concomitant]
     Active Substance: ZOLEDRONIC ACID
     Indication: BACK PAIN
     Dosage: 4 MG
     Route: 042
     Dates: start: 20180822
  29. CARVEDILOL. [Concomitant]
     Active Substance: CARVEDILOL
     Dosage: 12.5 MG, 0.5 DAY
     Route: 048
  30. IBUPROFEN. [Concomitant]
     Active Substance: IBUPROFEN
     Route: 048
  31. PERTUZUMAB. [Suspect]
     Active Substance: PERTUZUMAB
     Indication: HER2 POSITIVE BREAST CANCER
     Dosage: 840 MG, EVERY 3 WEEKS
     Route: 042
     Dates: start: 20160516, end: 20160516
  32. BENZYDAMINE HYDROCHLORIDE [Concomitant]
     Active Substance: BENZYDAMINE HYDROCHLORIDE
     Dosage: 15 MILLILITER
     Route: 060
     Dates: start: 20160525
  33. MENTHOL;PARAFFIN, LIQUID;PETROLATUM [Concomitant]
  34. CALCICHEW D3 FORTE [Concomitant]
     Active Substance: CALCIUM\CHOLECALCIFEROL
     Dosage: UNK, QD
     Route: 048
     Dates: start: 20180822
  35. BISOPROLOL [Concomitant]
     Active Substance: BISOPROLOL
     Dosage: 5 MG, QD
     Route: 048
     Dates: start: 20181030
  36. MORPHINE SULFATE. [Concomitant]
     Active Substance: MORPHINE SULFATE
     Indication: BACK PAIN
     Dosage: 5 MG, PRN
     Route: 048
     Dates: start: 20180822
  37. CYCLIZINE [Concomitant]
     Active Substance: CYCLIZINE
     Indication: DYSPHAGIA
     Dosage: 50 MG, 0.33 DAY
     Route: 048
     Dates: start: 20180619
  38. BUDESONIDE. [Concomitant]
     Active Substance: BUDESONIDE
     Dosage: 9 MG
     Route: 048
     Dates: start: 20191016
  39. TRASTUZUMAB (UNKNOWN) [Suspect]
     Active Substance: TRASTUZUMAB
     Dosage: 350 MG, EVERY 3 WEEKS (DOSE REDUCED)
     Route: 042
     Dates: start: 20160629, end: 20180524
  40. ZOPICLONE [Concomitant]
     Active Substance: ZOPICLONE
     Route: 048
  41. MORPHINE SULFATE. [Concomitant]
     Active Substance: MORPHINE SULFATE
     Dosage: 10 MG, 0.5 DAY
     Route: 048
     Dates: start: 20180822
  42. CANDESARTAN. [Concomitant]
     Active Substance: CANDESARTAN
     Dosage: 8 MG
     Route: 048
  43. NYSTATIN. [Concomitant]
     Active Substance: NYSTATIN
     Dosage: 0.25 DAY
     Route: 048
     Dates: start: 20160525
  44. CO?AMOXICLAV [AMOXICILLIN;CLAVULANATE POTASSIUM] [Concomitant]
     Active Substance: AMOXICILLIN\CLAVULANATE POTASSIUM
     Indication: RESPIRATORY TRACT INFECTION
     Dosage: 1 TABLET, 0.33 DAY
     Route: 048
     Dates: start: 20171108, end: 20171115

REACTIONS (4)
  - Deep vein thrombosis [Recovered/Resolved]
  - Mucosal inflammation [Not Recovered/Not Resolved]
  - Diarrhoea [Recovered/Resolved]
  - Diarrhoea [Not Recovered/Not Resolved]

NARRATIVE: CASE EVENT DATE: 201606
